FAERS Safety Report 21698027 (Version 2)
Quarter: 2022Q4

REPORT INFORMATION
  Report Type: Spontaneous
  Country: US (occurrence: US)
  Receive Date: 20221208
  Receipt Date: 20221221
  Transmission Date: 20230113
  Serious: No
  Sender: FDA-Public Use
  Company Number: US-JNJFOC-20221208230

PATIENT
  Age: 56 Year
  Sex: Female

DRUGS (8)
  1. TYLENOL [Suspect]
     Active Substance: ACETAMINOPHEN
     Indication: Bone pain
     Route: 065
  2. TYLENOL [Suspect]
     Active Substance: ACETAMINOPHEN
     Indication: Headache
  3. ORENITRAM [Concomitant]
     Active Substance: TREPROSTINIL
     Indication: Pulmonary arterial hypertension
     Dosage: 0.25 MG, 1 MG, 2.5 MG AND 5 MG
     Route: 048
     Dates: start: 20221007
  4. ORENITRAM [Concomitant]
     Active Substance: TREPROSTINIL
     Route: 048
     Dates: end: 202210
  5. ORENITRAM [Concomitant]
     Active Substance: TREPROSTINIL
     Route: 048
     Dates: start: 202210, end: 202210
  6. ORENITRAM [Concomitant]
     Active Substance: TREPROSTINIL
     Dosage: (1 TABLET OF 2.5 MG, 1MG AND 0.25 MG EACH)
     Route: 048
     Dates: start: 202210, end: 2022
  7. ORENITRAM [Concomitant]
     Active Substance: TREPROSTINIL
     Route: 048
     Dates: start: 2022
  8. VELETRI [Concomitant]
     Active Substance: EPOPROSTENOL
     Indication: Product used for unknown indication
     Route: 065

REACTIONS (1)
  - Therapeutic product effect incomplete [Unknown]

NARRATIVE: CASE EVENT DATE: 20220101
